FAERS Safety Report 9285069 (Version 2)
Quarter: 2013Q4

REPORT INFORMATION
  Report Type: Spontaneous
  Country: DK (occurrence: DK)
  Receive Date: 20130513
  Receipt Date: 20131212
  Transmission Date: 20140711
  Serious: Yes (Life-Threatening, Hospitalization)
  Sender: FDA-Public Use
  Company Number: DK-JNJFOC-20130503345

PATIENT
  Age: 74 Year
  Sex: Female

DRUGS (6)
  1. REMICADE [Suspect]
     Indication: RHEUMATOID ARTHRITIS
     Dosage: 210 MG HV. 8. UGE??THE CUMULATIVE DOSE TO FIRST REACTION WAS 6742.66 (UNITS UNSPECIFIED).
     Route: 042
     Dates: start: 20080425, end: 20130424
  2. METHOTREXATE [Suspect]
     Indication: RHEUMATOID ARTHRITIS
     Route: 065
     Dates: start: 20040618, end: 20120424
  3. DOLOL [Concomitant]
     Route: 065
  4. IBUMETIN [Concomitant]
     Route: 065
  5. LANSOPRAZOL [Concomitant]
     Route: 065
  6. RISEDRONATE [Concomitant]
     Route: 065

REACTIONS (1)
  - Meningitis listeria [Unknown]
